FAERS Safety Report 13038339 (Version 1)
Quarter: 2016Q4

REPORT INFORMATION
  Report Type: Spontaneous
  Country: DE (occurrence: DE)
  Receive Date: 20161219
  Receipt Date: 20161219
  Transmission Date: 20170207
  Serious: Yes (Hospitalization)
  Sender: FDA-Public Use
  Company Number: DE-ROCHE-1868510

PATIENT
  Age: 56 Year
  Sex: Female
  Weight: 77 kg

DRUGS (21)
  1. TAXOL [Suspect]
     Active Substance: PACLITAXEL
     Indication: BREAST CANCER
     Dosage: 12 ADMINISTRATIONS GIVEN
     Route: 042
     Dates: start: 20160412, end: 20160628
  2. LOPERAMID [Concomitant]
     Active Substance: LOPERAMIDE
  3. DIMETINDENE [Concomitant]
     Active Substance: DIMETHINDENE
     Route: 042
     Dates: start: 20160412, end: 20160628
  4. MESNA. [Concomitant]
     Active Substance: MESNA
     Dosage: 4 CYCLES OF ADMINISTRATIONS, 200-400-400 MG
     Route: 065
     Dates: start: 20160119, end: 20160324
  5. HERCEPTIN [Suspect]
     Active Substance: TRASTUZUMAB
     Indication: BREAST CANCER
     Dosage: 2 ADMINISTRATIONS
     Route: 042
     Dates: start: 20160119
  6. HERCEPTIN [Suspect]
     Active Substance: TRASTUZUMAB
     Route: 058
  7. CYCLOPHOSPHAMIDE. [Concomitant]
     Active Substance: CYCLOPHOSPHAMIDE
     Indication: BREAST CANCER
     Dosage: 4 ADMINISTRATIONS
     Route: 042
     Dates: start: 20160119, end: 20160324
  8. VITAMIN B COMPLEX [Concomitant]
     Active Substance: CYANOCOBALAMIN\DEXPANTHENOL\NIACINAMIDE\PYRIDOXINE HYDROCHLORIDE\RIBOFLAVIN 5^-PHOSPHATE SODIUM\THIAMINE HYDROCHLORIDE\VITAMIN B COMPLEX
     Route: 065
     Dates: start: 20160412, end: 20160628
  9. NEULASTA [Concomitant]
     Active Substance: PEGFILGRASTIM
     Route: 065
  10. JODTHYROX [Concomitant]
     Active Substance: LEVOTHYROXINE SODIUM\POTASSIUM IODIDE
     Indication: HYPOTHYROIDISM
     Route: 048
  11. HERCEPTIN [Suspect]
     Active Substance: TRASTUZUMAB
     Route: 042
     Dates: end: 20160822
  12. PERJETA [Suspect]
     Active Substance: PERTUZUMAB
     Indication: BREAST CANCER
     Route: 042
     Dates: start: 20160412
  13. PERJETA [Suspect]
     Active Substance: PERTUZUMAB
     Route: 042
     Dates: end: 20160726
  14. ARIXTRA [Concomitant]
     Active Substance: FONDAPARINUX SODIUM
  15. DEXAMETHASONE. [Concomitant]
     Active Substance: DEXAMETHASONE
     Route: 042
     Dates: start: 20160119, end: 20160628
  16. GRANISETRON [Concomitant]
     Active Substance: GRANISETRON
     Dosage: 4 ADMINISTRATIONS
     Route: 042
     Dates: start: 20160119, end: 20160628
  17. NEUPOGEN [Concomitant]
     Active Substance: FILGRASTIM
     Route: 065
  18. HERCEPTIN [Suspect]
     Active Substance: TRASTUZUMAB
     Indication: BREAST CANCER
     Dosage: 3 ADMINISTRATIONS GIVEN
     Route: 058
  19. EPIRUBICIN [Suspect]
     Active Substance: EPIRUBICIN
     Indication: BREAST CANCER
     Dosage: 4 ADMINISTRATIONS GIVEN
     Route: 042
     Dates: start: 20160119, end: 20160322
  20. RANITIDIN [Concomitant]
     Active Substance: RANITIDINE HYDROCHLORIDE
     Route: 042
     Dates: start: 20160412, end: 20160628
  21. PERENTEROL [Concomitant]
     Active Substance: SACCHAROMYCES CEREVISIAE

REACTIONS (5)
  - Transient ischaemic attack [Recovered/Resolved]
  - Ejection fraction decreased [Recovering/Resolving]
  - Embolism [Recovered/Resolved]
  - Congestive cardiomyopathy [Unknown]
  - Intracardiac thrombus [Unknown]

NARRATIVE: CASE EVENT DATE: 20160908
